FAERS Safety Report 10553647 (Version 2)
Quarter: 2014Q4

REPORT INFORMATION
  Report Type: Report from Study
  Country: CH (occurrence: CH)
  Receive Date: 20141030
  Receipt Date: 20141106
  Transmission Date: 20150529
  Serious: Yes (Hospitalization)
  Sender: FDA-Public Use
  Company Number: PHHO2014CH014379

PATIENT
  Age: 42 Year
  Sex: Male
  Weight: 97 kg

DRUGS (1)
  1. ACZ885 [Suspect]
     Active Substance: CANAKINUMAB
     Indication: PYODERMA GANGRENOSUM
     Dosage: 150 MG, UNK
     Route: 058
     Dates: start: 20120724, end: 20120808

REACTIONS (2)
  - Pyoderma gangrenosum [Recovered/Resolved]
  - Scrotal infection [Recovered/Resolved]

NARRATIVE: CASE EVENT DATE: 20120803
